FAERS Safety Report 16992283 (Version 2)
Quarter: 2019Q4

REPORT INFORMATION
  Report Type: Spontaneous
  Country: ZA (occurrence: ZA)
  Receive Date: 20191105
  Receipt Date: 20191112
  Transmission Date: 20200122
  Serious: Yes (Congenital Anomaly, Other)
  Sender: FDA-Public Use
  Company Number: ZA-BRISTOL-MYERS SQUIBB COMPANY-BMS-2019-104937

PATIENT

DRUGS (1)
  1. ATRIPLA [Suspect]
     Active Substance: EFAVIRENZ\EMTRICITABINE\TENOFOVIR DISOPROXIL FUMARATE
     Indication: PRODUCT USED FOR UNKNOWN INDICATION
     Dosage: UNK
     Route: 064

REACTIONS (2)
  - Cleft lip and palate [Unknown]
  - Foetal exposure during pregnancy [Unknown]
